FAERS Safety Report 9376099 (Version 1)
Quarter: 2013Q2

REPORT INFORMATION
  Report Type: Spontaneous
  Country: NO (occurrence: NO)
  Receive Date: 20130630
  Receipt Date: 20130630
  Transmission Date: 20140414
  Serious: Yes (Death)
  Sender: FDA-Public Use
  Company Number: NO-SANOFI-AVENTIS-2013SA063201

PATIENT
  Age: 92 Year
  Sex: Female

DRUGS (8)
  1. PLAVIX [Suspect]
     Indication: CARDIAC FAILURE
     Route: 048
     Dates: start: 20130409, end: 20130507
  2. PARACET [Concomitant]
     Indication: PAIN
     Dosage: DOSE NOT GIVEN.
     Route: 048
  3. DONEPEZIL [Concomitant]
     Indication: DEMENTIA ALZHEIMER^S TYPE
     Route: 048
  4. ALBYL-E [Concomitant]
     Indication: CORONARY ARTERY DISEASE
     Route: 048
  5. METOPROLOL [Concomitant]
     Indication: CORONARY ARTERY DISEASE
     Route: 048
  6. CALCIGRAN [Concomitant]
     Indication: OSTEOPOROSIS
     Dosage: 1000/800
     Route: 048
  7. ZOPICLONE [Concomitant]
     Indication: SLEEP DISORDER
     Route: 048
  8. BURINEX [Concomitant]
     Indication: CARDIAC FAILURE
     Route: 048

REACTIONS (1)
  - Hepatic failure [Fatal]
